FAERS Safety Report 5634078-4 (Version None)
Quarter: 2008Q1

REPORT INFORMATION
  Report Type: 
  Country: None (occurrence: None)
  Receive Date: 20080221
  Receipt Date: 20080212
  Transmission Date: 20080703
  Serious: No
  Sender: FDA-Public Use
  Company Number: US-BAXTER-2008BH001059

PATIENT
  Age: 26 Year
  Sex: Female
  Weight: 105 kg

DRUGS (1)
  1. GAMMAGARD S/D [Suspect]
     Indication: IMMUNODEFICIENCY
     Route: 042
     Dates: start: 20080124, end: 20080124

REACTIONS (5)
  - FATIGUE [None]
  - FEELING COLD [None]
  - HEADACHE [None]
  - PALLOR [None]
  - VOMITING [None]
